FAERS Safety Report 7424654-0 (Version None)
Quarter: 2011Q2

REPORT INFORMATION
  Report Type: 
  Country: None (occurrence: None)
  Receive Date: 20110419
  Receipt Date: 20110407
  Transmission Date: 20111010
  Serious: Yes (Other)
  Sender: FDA-Public Use
  Company Number: US-MYLANLABS-2011S1007234

PATIENT
  Age: 19 Year
  Sex: Male
  Weight: 90.72 kg

DRUGS (4)
  1. REMERON [Concomitant]
     Indication: INSOMNIA
     Route: 048
     Dates: start: 20100101
  2. CELEXA [Concomitant]
     Indication: DEPRESSION
     Route: 048
     Dates: start: 20100101
  3. LORAZEPAM [Suspect]
     Indication: DEPRESSION
     Route: 048
     Dates: end: 20110401
  4. LORAZEPAM [Suspect]
     Indication: ANXIETY
     Route: 048
     Dates: end: 20110401

REACTIONS (2)
  - DRUG SCREEN NEGATIVE [None]
  - DRUG WITHDRAWAL SYNDROME [None]
